FAERS Safety Report 7177996-0 (Version None)
Quarter: 2010Q4

REPORT INFORMATION
  Report Type: 
  Country: None (occurrence: None)
  Receive Date: 20101220
  Receipt Date: 20101207
  Transmission Date: 20110411
  Serious: Yes (Other)
  Sender: FDA-Public Use
  Company Number: GR-ACTELION-A-CH2010-42461

PATIENT
  Sex: Female
  Weight: 84 kg

DRUGS (5)
  1. TRACLEER [Suspect]
     Indication: SKIN ULCER
     Dosage: 125 MG, BID
     Route: 048
     Dates: start: 20100205, end: 20101001
  2. TRACLEER [Suspect]
     Dosage: 62.5 MG, BID
     Route: 048
     Dates: start: 20100104, end: 20100204
  3. TRACLEER [Suspect]
     Dosage: 125 MG, BID
     Route: 048
     Dates: end: 20101115
  4. DILTIAZEM [Concomitant]
  5. ALFACALCIDOL [Concomitant]

REACTIONS (1)
  - PRURITUS GENERALISED [None]
